FAERS Safety Report 18544441 (Version 3)
Quarter: 2022Q3

REPORT INFORMATION
  Report Type: Spontaneous
  Country: DE (occurrence: DE)
  Receive Date: 20201125
  Receipt Date: 20220713
  Transmission Date: 20221027
  Serious: No
  Sender: FDA-Public Use
  Company Number: DE-GSKCCFEMEA-CASE-01086945_AE-37028

PATIENT

DRUGS (2)
  1. DUAC [Interacting]
     Active Substance: BENZOYL PEROXIDE\CLINDAMYCIN PHOSPHATE
     Indication: Product used for unknown indication
     Dosage: 30 MG, 1D
     Route: 061
  2. DIENOGEST\ETHINYL ESTRADIOL [Interacting]
     Active Substance: DIENOGEST\ETHINYL ESTRADIOL
     Indication: Product used for unknown indication
     Dosage: UNK

REACTIONS (3)
  - Amenorrhoea [Unknown]
  - Pregnancy test negative [Unknown]
  - Overdose [Unknown]
